FAERS Safety Report 24936887 (Version 1)
Quarter: 2025Q1

REPORT INFORMATION
  Report Type: Spontaneous
  Country: NL (occurrence: NL)
  Receive Date: 20250206
  Receipt Date: 20250206
  Transmission Date: 20250409
  Serious: Yes (Death, Hospitalization)
  Sender: MYLAN
  Company Number: NL-MYLANLABS-2025M1009335

PATIENT
  Age: 73 Year
  Sex: Male

DRUGS (11)
  1. PREDNISOLONE [Suspect]
     Active Substance: PREDNISOLONE
     Indication: Lupus nephritis
     Dosage: 60 MILLIGRAM, QD, HIGH-DOSE PREDNISOLONE
     Route: 065
  2. PREDNISOLONE [Suspect]
     Active Substance: PREDNISOLONE
     Indication: Drug therapy
     Route: 047
  3. MYCOPHENOLATE MOFETIL [Suspect]
     Active Substance: MYCOPHENOLATE MOFETIL
     Indication: Lupus nephritis
     Dosage: 1 GRAM, BID
     Route: 065
  4. VORICONAZOLE [Suspect]
     Active Substance: VORICONAZOLE
     Indication: Drug therapy
     Dosage: 6 MILLIGRAM/KILOGRAM, BID
     Route: 042
  5. AMPHOTERICIN B [Suspect]
     Active Substance: AMPHOTERICIN B
     Indication: Drug therapy
     Dosage: 3 MILLIGRAM/KILOGRAM, QD
     Route: 065
  6. FUROSEMIDE [Concomitant]
     Active Substance: FUROSEMIDE
     Indication: Fluid retention
     Dosage: 40 MILLIGRAM, QD
     Route: 065
  7. FUROSEMIDE [Concomitant]
     Active Substance: FUROSEMIDE
     Route: 065
  8. AMLODIPINE [Concomitant]
     Active Substance: AMLODIPINE BESYLATE
     Indication: Hypertension
     Dosage: 5 MILLIGRAM, QD
     Route: 065
  9. GANCICLOVIR [Concomitant]
     Active Substance: GANCICLOVIR
     Indication: Drug therapy
     Dosage: 5 MILLIGRAM/KILOGRAM, BID
     Route: 065
  10. ATROPINE [Concomitant]
     Active Substance: ATROPINE
     Indication: Drug therapy
     Route: 047
  11. CEFTRIAXONE [Concomitant]
     Active Substance: CEFTRIAXONE
     Indication: Product used for unknown indication
     Dosage: 2 GRAM, QD
     Route: 065

REACTIONS (7)
  - Bronchopulmonary aspergillosis [Fatal]
  - Disseminated aspergillosis [Fatal]
  - Brain herniation [Fatal]
  - Cerebral haemorrhage [Fatal]
  - Haemorrhage intracranial [Fatal]
  - Atrial fibrillation [Fatal]
  - Drug ineffective [Fatal]
